FAERS Safety Report 17488273 (Version 6)
Quarter: 2020Q3

REPORT INFORMATION
  Report Type: Spontaneous
  Country: US (occurrence: US)
  Receive Date: 20200303
  Receipt Date: 20200924
  Transmission Date: 20201102
  Serious: Yes (Congenital Anomaly, Other)
  Sender: FDA-Public Use
  Company Number: NVSC2020US058928

PATIENT
  Sex: Male

DRUGS (1)
  1. ZOFRAN [Suspect]
     Active Substance: ONDANSETRON HYDROCHLORIDE
     Indication: FOETAL EXPOSURE DURING PREGNANCY
     Dosage: MOTHER DOSE: 4 MG, TID
     Route: 064

REACTIONS (17)
  - Tonsillitis streptococcal [Unknown]
  - Otitis media [Unknown]
  - Foetal exposure during pregnancy [Unknown]
  - Jaundice [Unknown]
  - Right ventricular enlargement [Unknown]
  - Croup infectious [Unknown]
  - Vomiting [Unknown]
  - Right atrial dilatation [Unknown]
  - Cardiomegaly [Unknown]
  - Injury [Unknown]
  - Upper respiratory tract infection [Unknown]
  - Atrial septal defect [Unknown]
  - Weight decreased [Unknown]
  - Pharyngitis [Unknown]
  - Right ventricular hypertrophy [Unknown]
  - Gastroenteritis [Unknown]
  - Cyanosis [Unknown]
